FAERS Safety Report 9235126 (Version 2)
Quarter: 2013Q2

REPORT INFORMATION
  Report Type: Spontaneous
  Country: JP (occurrence: JP)
  Receive Date: 20130416
  Receipt Date: 20130506
  Transmission Date: 20140414
  Serious: Yes (Hospitalization, Other)
  Sender: FDA-Public Use
  Company Number: JP-AMGEN-JPNSP2013026370

PATIENT
  Age: 71 Year
  Sex: Female

DRUGS (6)
  1. ENBREL [Suspect]
     Indication: RHEUMATOID ARTHRITIS
     Dosage: 25 MG, WEEKLY
     Route: 058
     Dates: start: 20101018, end: 20110208
  2. ENBREL [Suspect]
     Dosage: 50 MG, WEEKLY
     Route: 058
     Dates: start: 20110209, end: 20110517
  3. METHOTREXATE SODIUM [Concomitant]
     Indication: RHEUMATOID ARTHRITIS
     Dosage: 8 MG, WEEKLY
     Route: 048
     Dates: start: 20100419, end: 20100512
  4. METHOTREXATE SODIUM [Concomitant]
     Dosage: 8 MG, QWK
     Route: 048
     Dates: start: 20100513, end: 20110506
  5. PREDNISOLONE [Concomitant]
     Indication: RHEUMATOID ARTHRITIS
     Dosage: 10 MG, 1X/DAY
  6. PREDNISOLONE [Concomitant]
     Dosage: 5 MG, 1X/DAY

REACTIONS (2)
  - Antineutrophil cytoplasmic antibody increased [Recovering/Resolving]
  - Glomerulonephritis rapidly progressive [Recovering/Resolving]
